FAERS Safety Report 18407033 (Version 1)
Quarter: 2020Q4

REPORT INFORMATION
  Report Type: Spontaneous
  Country: US (occurrence: US)
  Receive Date: 20201021
  Receipt Date: 20201021
  Transmission Date: 20210114
  Serious: No
  Sender: FDA-Public Use
  Company Number: US-CIPLA LTD.-2020US02920

PATIENT

DRUGS (1)
  1. DARIFENACIN. [Suspect]
     Active Substance: DARIFENACIN
     Indication: URGE INCONTINENCE
     Dosage: 15 MILLIGRAM, UNK
     Route: 065

REACTIONS (3)
  - Drug tolerance increased [Unknown]
  - Constipation [Unknown]
  - Therapeutic product effect decreased [Unknown]
